FAERS Safety Report 8455159-6 (Version None)
Quarter: 2012Q2

REPORT INFORMATION
  Report Type: 
  Country: None (occurrence: None)
  Receive Date: 20120621
  Receipt Date: 20120613
  Transmission Date: 20120825
  Serious: Yes (Hospitalization)
  Sender: FDA-Public Use
  Company Number: CZ-SANOFI-AVENTIS-2012SA037787

PATIENT
  Sex: Female

DRUGS (2)
  1. ETANERCEPT [Suspect]
     Route: 065
     Dates: start: 20090119, end: 20120305
  2. ARAVA [Suspect]
     Route: 048
     Dates: start: 20060228, end: 20120305

REACTIONS (1)
  - APLASTIC ANAEMIA [None]
